FAERS Safety Report 20548597 (Version 5)
Quarter: 2022Q2

REPORT INFORMATION
  Report Type: Spontaneous
  Country: IT (occurrence: IT)
  Receive Date: 20220303
  Receipt Date: 20220607
  Transmission Date: 20220721
  Serious: Yes (Other)
  Sender: FDA-Public Use
  Company Number: IT-NOVARTISPH-NVSC2022IT050789

PATIENT
  Age: 68 Year
  Sex: Female

DRUGS (2)
  1. RASAGILINE [Suspect]
     Active Substance: RASAGILINE
     Indication: Parkinson^s disease
     Dosage: 1 MG, QD
     Route: 065
  2. ROTIGOTINE [Concomitant]
     Active Substance: ROTIGOTINE
     Indication: Parkinson^s disease
     Dosage: 4 MILLIGRAM, QD
     Route: 062

REACTIONS (14)
  - Drug withdrawal syndrome [Recovered/Resolved]
  - Anxiety [Unknown]
  - Agitation [Unknown]
  - Dysphoria [Unknown]
  - Fatigue [Unknown]
  - Insomnia [Unknown]
  - Pain [Unknown]
  - Panic attack [Unknown]
  - Dyspnoea [Unknown]
  - Palpitations [Unknown]
  - Hyperventilation [Unknown]
  - Depression [Unknown]
  - Headache [Unknown]
  - Hypertension [Unknown]
